FAERS Safety Report 18561521 (Version 1)
Quarter: 2020Q4

REPORT INFORMATION
  Report Type: Other
  Country: US (occurrence: US)
  Receive Date: 20201130
  Receipt Date: 20201130
  Transmission Date: 20210114
  Serious: Yes (Other)
  Sender: FDA-Public Use
  Company Number: US-ROCHE-2443870

PATIENT
  Age: 60 Year
  Sex: Female

DRUGS (9)
  1. DOCETAXEL. [Concomitant]
     Active Substance: DOCETAXEL
  2. DENOSUMAB [Concomitant]
     Active Substance: DENOSUMAB
  3. PALBOCICLIB [Concomitant]
     Active Substance: PALBOCICLIB
  4. TRASTUZUMAB EMTANSINE [Concomitant]
     Active Substance: ADO-TRASTUZUMAB EMTANSINE
  5. PERTUZUMAB. [Concomitant]
     Active Substance: PERTUZUMAB
  6. CAPECITABINE. [Concomitant]
     Active Substance: CAPECITABINE
     Route: 048
  7. LAPATINIB [Concomitant]
     Active Substance: LAPATINIB
  8. PACLITAXEL. [Concomitant]
     Active Substance: PACLITAXEL
  9. TRASTUZUMAB. [Suspect]
     Active Substance: TRASTUZUMAB
     Indication: INVASIVE LOBULAR BREAST CARCINOMA
     Route: 065

REACTIONS (1)
  - Left ventricular dysfunction [Unknown]
